FAERS Safety Report 13181968 (Version 2)
Quarter: 2017Q2

REPORT INFORMATION
  Report Type: Spontaneous
  Country: US (occurrence: US)
  Receive Date: 20170202
  Receipt Date: 20170502
  Transmission Date: 20170830
  Serious: No
  Sender: FDA-Public Use
  Company Number: US-IMPAX LABORATORIES, INC-2016-IPXL-02384

PATIENT
  Age: 72 Year
  Sex: Male
  Weight: 88 kg

DRUGS (2)
  1. RYTARY [Suspect]
     Active Substance: CARBIDOPA\LEVODOPA
     Indication: PARKINSON^S DISEASE
     Dosage: ONE CAPSULE OF 61.25/245 MG EVERY 8HR
     Route: 048
     Dates: start: 2016, end: 20170101
  2. RYTARY [Suspect]
     Active Substance: CARBIDOPA\LEVODOPA
     Dosage: ONE CAPSULE OF 36.25/145 MG, EVERY 8HR
     Route: 048
     Dates: start: 2016, end: 20170101

REACTIONS (5)
  - Night blindness [Not Recovered/Not Resolved]
  - Tremor [Not Recovered/Not Resolved]
  - Diplopia [Not Recovered/Not Resolved]
  - Condition aggravated [Not Recovered/Not Resolved]
  - Dizziness [Not Recovered/Not Resolved]
